FAERS Safety Report 5920359-3 (Version None)
Quarter: 2008Q4

REPORT INFORMATION
  Report Type: 
  Country: None (occurrence: None)
  Receive Date: 20081016
  Receipt Date: 20081007
  Transmission Date: 20090506
  Serious: Yes (Hospitalization)
  Sender: FDA-Public Use
  Company Number: PHHY2008AU22380

PATIENT
  Sex: Male

DRUGS (1)
  1. CLOZARIL [Suspect]
     Dosage: 150 MG
     Dates: start: 20080914, end: 20080930

REACTIONS (5)
  - INFECTION [None]
  - NEUTROPHIL COUNT DECREASED [None]
  - PYREXIA [None]
  - SURGERY [None]
  - WHITE BLOOD CELL COUNT DECREASED [None]
